FAERS Safety Report 13777618 (Version 1)
Quarter: 2017Q3

REPORT INFORMATION
  Report Type: Not Available
  Country: US (occurrence: US)
  Receive Date: 20170721
  Receipt Date: 20170721
  Transmission Date: 20171127
  Serious: No
  Sender: FDA-Public Use
  Company Number: US-ANIPHARMA-2017-US-006194

PATIENT
  Age: 70 Year
  Sex: Female
  Weight: 54.43 kg

DRUGS (1)
  1. METHAZOLAMIDE TABLETS [Suspect]
     Active Substance: METHAZOLAMIDE
     Dosage: 3 PER DAY
     Route: 048
     Dates: start: 20170525

REACTIONS (1)
  - Dysgeusia [Unknown]

NARRATIVE: CASE EVENT DATE: 20170525
